FAERS Safety Report 17619230 (Version 2)
Quarter: 2020Q2

REPORT INFORMATION
  Report Type: Spontaneous
  Country: US (occurrence: US)
  Receive Date: 20200402
  Receipt Date: 20200407
  Transmission Date: 20200713
  Serious: Yes (Hospitalization)
  Sender: FDA-Public Use
  Company Number: US-MATRIXX INITIATIVES, INC.-2082273

PATIENT
  Age: 57 Year
  Sex: Female
  Weight: 78.64 kg

DRUGS (3)
  1. OCUVITE [Concomitant]
     Active Substance: VITAMINS
  2. ZICAM COLD REMEDY RAPIDMELTS [Suspect]
     Active Substance: HOMEOPATHICS\ZINC ACETATE ANHYDROUS\ZINC GLUCONATE
     Indication: RHINORRHOEA
     Route: 048
     Dates: start: 20200323, end: 20200323
  3. CLARITIN [Concomitant]
     Active Substance: LORATADINE

REACTIONS (11)
  - Nausea [None]
  - Somnolence [None]
  - Anxiety [None]
  - Vomiting [None]
  - Slow speech [None]
  - Cerebrovascular accident [None]
  - Confusional state [None]
  - Tremor [None]
  - Hyperhidrosis [None]
  - Dizziness [None]
  - Amnesia [None]
